FAERS Safety Report 11130651 (Version 1)
Quarter: 2015Q2

REPORT INFORMATION
  Report Type: Spontaneous
  Country: US (occurrence: None)
  Receive Date: 20150520
  Receipt Date: 20150520
  Transmission Date: 20150821
  Serious: Yes (Hospitalization)
  Sender: FDA-Public Use
  Company Number: 15AE024

PATIENT
  Sex: Male

DRUGS (3)
  1. PRAVASTATIN [Concomitant]
     Active Substance: PRAVASTATIN\PRAVASTATIN SODIUM
  2. CITALOPRAM [Concomitant]
     Active Substance: CITALOPRAM HYDROBROMIDE
  3. APAP 325 MG PHENYLEPHRINE HCI 5 MG [Suspect]
     Active Substance: ACETAMINOPHEN\PHENYLEPHRINE HYDROCHLORIDE
     Indication: SINUSITIS
     Dosage: 6 THROUGHTOUT THE DAY

REACTIONS (1)
  - Hypersensitivity [None]

NARRATIVE: CASE EVENT DATE: 20150507
